FAERS Safety Report 16211734 (Version 1)
Quarter: 2019Q2

REPORT INFORMATION
  Report Type: Spontaneous
  Country: US (occurrence: US)
  Receive Date: 20190418
  Receipt Date: 20190418
  Transmission Date: 20190711
  Serious: No
  Sender: FDA-Public Use
  Company Number: US-BAYER-2019-077883

PATIENT
  Age: 13 Year
  Sex: Female
  Weight: 45 kg

DRUGS (2)
  1. ONE A DAY WOMEN^S [Concomitant]
     Active Substance: MINERALS\VITAMINS
  2. MIRALAX [Suspect]
     Active Substance: POLYETHYLENE GLYCOL 3350
     Indication: CONSTIPATION PROPHYLAXIS
     Dosage: 10 G, QD
     Route: 048
     Dates: start: 20190415, end: 20190415

REACTIONS (11)
  - Dyspnoea [Recovered/Resolved]
  - Product use in unapproved indication [Unknown]
  - Erythema [Recovered/Resolved]
  - Diarrhoea [Recovered/Resolved]
  - Vomiting [Recovered/Resolved]
  - Off label use [None]
  - Muscle contractions involuntary [Recovered/Resolved]
  - Headache [Recovered/Resolved]
  - Urine output increased [Recovered/Resolved]
  - Hyperhidrosis [Recovered/Resolved]
  - Tremor [Recovered/Resolved]

NARRATIVE: CASE EVENT DATE: 20190415
